FAERS Safety Report 6293273-4 (Version None)
Quarter: 2009Q3

REPORT INFORMATION
  Report Type: 
  Country: None (occurrence: None)
  Receive Date: 20090731
  Receipt Date: 20090720
  Transmission Date: 20100115
  Serious: Yes (Congenital Anomaly)
  Sender: FDA-Public Use
  Company Number: US-WATSON-2009-05697

PATIENT
  Sex: Female
  Weight: 2.95 kg

DRUGS (1)
  1. NORTRIPTYLINE HCL [Suspect]
     Indication: MATERNAL DRUGS AFFECTING FOETUS
     Dosage: UNK
     Route: 015

REACTIONS (1)
  - CRANIOSYNOSTOSIS [None]
